FAERS Safety Report 6439675-4 (Version None)
Quarter: 2009Q4

REPORT INFORMATION
  Report Type: 
  Country: None (occurrence: None)
  Receive Date: 20091113
  Receipt Date: 20091102
  Transmission Date: 20100525
  Serious: Yes (Other)
  Sender: FDA-Public Use
  Company Number: US-PFIZER INC-2008061410

PATIENT
  Sex: Female
  Weight: 111 kg

DRUGS (12)
  1. CHANTIX [Suspect]
     Indication: NICOTINE DEPENDENCE
     Dosage: 1 MG, 2X/DAY
  2. AVELOX [Suspect]
     Indication: BRONCHITIS CHRONIC
     Dates: start: 20080703
  3. TRAMADOL [Concomitant]
  4. LITHIUM CARBONATE [Concomitant]
  5. XANAX [Concomitant]
  6. COMBIVENT [Concomitant]
  7. TRAZODONE HYDROCHLORIDE [Concomitant]
  8. CLARITIN-D [Concomitant]
  9. ESTROGENS CONJUGATED [Concomitant]
  10. PROTONIX [Concomitant]
  11. MAXZIDE [Concomitant]
  12. NASACORT [Concomitant]

REACTIONS (4)
  - BRONCHOPNEUMONIA [None]
  - BRONCHOSPASM [None]
  - GLOSSITIS [None]
  - HYPERSENSITIVITY [None]
